FAERS Safety Report 4367876-8 (Version None)
Quarter: 2004Q2

REPORT INFORMATION
  Report Type: 
  Country: None (occurrence: None)
  Receive Date: 20040601
  Receipt Date: 20040601
  Transmission Date: 20050107
  Serious: Yes (Death)
  Sender: FDA-Public Use
  Company Number: None

PATIENT
  Age: 14 Year
  Sex: Female
  Weight: 63.5036 kg

DRUGS (4)
  1. LEXAPRO [Suspect]
     Indication: ANXIETY
     Dosage: 1/2 DOSE EA MORNIN ORAL
     Route: 048
     Dates: start: 20040424, end: 20040525
  2. LEXAPRO [Suspect]
     Indication: DEPRESSION
     Dosage: 1/2 DOSE EA MORNIN ORAL
     Route: 048
     Dates: start: 20040424, end: 20040525
  3. ADDERALL 30 [Suspect]
     Indication: ATTENTION DEFICIT/HYPERACTIVITY DISORDER
     Dosage: 1 DOSE EA. MORNIN ORAL
     Route: 048
     Dates: start: 20040410, end: 20040525
  4. ADDERALL 30 [Suspect]

REACTIONS (1)
  - COMPLETED SUICIDE [None]
